FAERS Safety Report 4650386-8 (Version None)
Quarter: 2005Q2

REPORT INFORMATION
  Report Type: 
  Country: None (occurrence: None)
  Receive Date: 20050429
  Receipt Date: 20050414
  Transmission Date: 20051028
  Serious: Yes (Hospitalization)
  Sender: FDA-Public Use
  Company Number: A01200502561

PATIENT
  Age: 36 Year
  Sex: Female

DRUGS (2)
  1. PLAQUENIL [Suspect]
     Indication: RHEUMATOID ARTHRITIS
     Dosage: 200 MG BID, ORAL
     Route: 048
     Dates: start: 20040128, end: 20040213
  2. CELECOXIB - 200 MG [Suspect]
     Indication: RHEUMATOID ARTHRITIS
     Dosage: 400 MG, ORAL
     Route: 048
     Dates: start: 20040128, end: 20040213

REACTIONS (3)
  - ECZEMA [None]
  - GINGIVAL PAIN [None]
  - LIP DRY [None]
